FAERS Safety Report 21277760 (Version 1)
Quarter: 2022Q3

REPORT INFORMATION
  Report Type: Spontaneous
  Country: PR (occurrence: PR)
  Receive Date: 20220831
  Receipt Date: 20220831
  Transmission Date: 20221026
  Serious: No
  Sender: FDA-Public Use
  Company Number: PR-ABBVIE-22K-131-4354746-00

PATIENT
  Sex: Male

DRUGS (1)
  1. HUMIRA [Suspect]
     Active Substance: ADALIMUMAB
     Indication: Crohn^s disease
     Route: 058
     Dates: start: 20210917

REACTIONS (2)
  - Constipation [Unknown]
  - Fatigue [Unknown]

NARRATIVE: CASE EVENT DATE: 20211001
